FAERS Safety Report 20166840 (Version 1)
Quarter: 2021Q4

REPORT INFORMATION
  Report Type: Spontaneous
  Country: US (occurrence: US)
  Receive Date: 20211209
  Receipt Date: 20211209
  Transmission Date: 20220304
  Serious: Yes (Hospitalization)
  Sender: FDA-Public Use
  Company Number: US-CHIESI-2021CHF06143

PATIENT
  Age: 18 Year
  Sex: Female

DRUGS (1)
  1. REVCOVI [Suspect]
     Active Substance: ELAPEGADEMASE-LVLR
     Indication: Immunodeficiency
     Dosage: 2.5 ML INJECTION IN ONE LEG AND 2.5ML INJECTION IN THE OTHER LEG TWICE A WEEK
     Route: 030
     Dates: start: 2021

REACTIONS (5)
  - Pyrexia [Unknown]
  - Palpitations [Unknown]
  - Systemic bacterial infection [Unknown]
  - Vomiting [Unknown]
  - Animal scratch [Recovered/Resolved]

NARRATIVE: CASE EVENT DATE: 20211101
